FAERS Safety Report 24213579 (Version 1)
Quarter: 2024Q3

REPORT INFORMATION
  Report Type: Spontaneous
  Country: CN (occurrence: CN)
  Receive Date: 20240815
  Receipt Date: 20240815
  Transmission Date: 20241017
  Serious: Yes (Hospitalization, Other)
  Sender: BAYER
  Company Number: CN-BAYER-2024A117647

PATIENT
  Age: 65 Year
  Sex: Male
  Weight: 44.6 kg

DRUGS (3)
  1. GLUCOBAY [Suspect]
     Active Substance: ACARBOSE
     Indication: Type 2 diabetes mellitus
     Dosage: 0.1 G, BID
     Route: 048
     Dates: start: 202207, end: 20240730
  2. EMPAGLIFLOZIN [Suspect]
     Active Substance: EMPAGLIFLOZIN
     Indication: Type 2 diabetes mellitus
     Dosage: 10 MG, BID
     Route: 048
     Dates: start: 202207, end: 20240730
  3. SAXAGLIPTIN [Suspect]
     Active Substance: SAXAGLIPTIN
     Indication: Type 2 diabetes mellitus
     Dosage: 5 MG, BID
     Route: 048
     Dates: start: 202207, end: 20240730

REACTIONS (6)
  - Oedema peripheral [None]
  - Hepatic enzyme increased [Recovering/Resolving]
  - Respiratory rate increased [None]
  - Blood albumin decreased [Not Recovered/Not Resolved]
  - Gamma-glutamyltransferase increased [Not Recovered/Not Resolved]
  - Blood bilirubin increased [Recovered/Resolved]

NARRATIVE: CASE EVENT DATE: 20230101
